FAERS Safety Report 19145106 (Version 1)
Quarter: 2021Q2

REPORT INFORMATION
  Report Type: Spontaneous
  Country: US (occurrence: US)
  Receive Date: 20210416
  Receipt Date: 20210416
  Transmission Date: 20210717
  Serious: Yes (Hospitalization)
  Sender: FDA-Public Use
  Company Number: US-MYLANLABS-2021M1021917

PATIENT
  Age: 58 Year
  Sex: Female

DRUGS (6)
  1. METHADONE [Suspect]
     Active Substance: METHADONE HYDROCHLORIDE
     Indication: BACK PAIN
     Dosage: 130 MILLIGRAM, Q8H
     Route: 048
  2. DEXMEDETOMIDINE. [Suspect]
     Active Substance: DEXMEDETOMIDINE
     Indication: DELIRIUM
  3. HYDROMORPHONE [Suspect]
     Active Substance: HYDROMORPHONE
     Indication: ABDOMINAL PAIN
     Route: 065
  4. DEXMEDETOMIDINE. [Suspect]
     Active Substance: DEXMEDETOMIDINE
     Indication: BACK PAIN
     Dosage: 0.7 MICROGRAM/KILOGRAM, QMINUTE
  5. KETAMINE [Suspect]
     Active Substance: KETAMINE
     Indication: ABDOMINAL PAIN
     Dosage: 7 MICROGRAM/KILOGRAM, QMINUTE
     Route: 042
  6. DEXMEDETOMIDINE. [Suspect]
     Active Substance: DEXMEDETOMIDINE
     Indication: ABDOMINAL PAIN

REACTIONS (3)
  - Drug ineffective [Unknown]
  - Off label use [Unknown]
  - Product administration error [Unknown]
